FAERS Safety Report 4435727-9 (Version None)
Quarter: 2004Q3

REPORT INFORMATION
  Report Type: 
  Country: None (occurrence: None)
  Receive Date: 20040826
  Receipt Date: 20040816
  Transmission Date: 20050211
  Serious: Yes (Other)
  Sender: FDA-Public Use
  Company Number: 230028M04SWE

PATIENT
  Sex: Male

DRUGS (1)
  1. REBIF [Suspect]

REACTIONS (5)
  - SKIN BLEEDING [None]
  - SKIN INFECTION [None]
  - SKIN NECROSIS [None]
  - SKIN REACTION [None]
  - SKIN ULCER [None]
